FAERS Safety Report 5369033-5 (Version None)
Quarter: 2007Q2

REPORT INFORMATION
  Report Type: 
  Country: None (occurrence: None)
  Receive Date: 20070620
  Receipt Date: 20070606
  Transmission Date: 20071010
  Serious: Yes (Hospitalization)
  Sender: FDA-Public Use
  Company Number: 100#03#2007-02123

PATIENT
  Age: 29 Year
  Sex: Female

DRUGS (3)
  1. CIPROFLOXACIN [Suspect]
     Indication: DRUG USE FOR UNKNOWN INDICATION
     Dosage: 400 MG TWICE DAILY INTRAVENOUS (NOT OTHERWISE SPECIFIED)
     Route: 042
  2. ENOXAPARIN SODIUM (ENOXAPARIN SODIUM) (ENOXAPARIN SODIUM) [Concomitant]
  3. TOBRAMYCINE (TOBRAMYCIN) (TOBRAMYCINE) [Concomitant]

REACTIONS (5)
  - ABNORMAL CLOTTING FACTOR [None]
  - ACTIVATED PARTIAL THROMBOPLASTIN TIME PROLONGED [None]
  - COAGULOPATHY [None]
  - DISTAL INTESTINAL OBSTRUCTION SYNDROME [None]
  - INTERNATIONAL NORMALISED RATIO INCREASED [None]
